FAERS Safety Report 7686051-2 (Version None)
Quarter: 2011Q3

REPORT INFORMATION
  Report Type: 
  Country: None (occurrence: None)
  Receive Date: 20110816
  Receipt Date: 20110805
  Transmission Date: 20111222
  Serious: Yes (Other)
  Sender: FDA-Public Use
  Company Number: PHHY2011US32705

PATIENT
  Sex: Male
  Weight: 70.5 kg

DRUGS (8)
  1. TENORMIN [Concomitant]
     Indication: HYPERTENSION
     Dosage: 25 MG, DAILY
     Route: 048
     Dates: start: 20090906
  2. EXJADE [Suspect]
     Dosage: 1500 MG, DAILY
     Route: 048
     Dates: start: 20110101
  3. FISH OIL [Concomitant]
  4. DECADRON [Concomitant]
     Indication: APPETITE DISORDER
     Dosage: 4 MG, DAILY
     Route: 048
     Dates: start: 20110322
  5. EXJADE [Suspect]
     Indication: IRON OVERLOAD
     Dosage: 1500 MG, DAILY
     Route: 048
     Dates: start: 20110118
  6. EXJADE [Suspect]
     Indication: DEFICIENCY ANAEMIA
     Dosage: 800 MG, QD
     Route: 048
  7. SYNTHROID [Concomitant]
     Indication: HYPOTHYROIDISM
     Dosage: 75 MG, DAILY
     Route: 048
     Dates: start: 20071127
  8. VITAMIN B6 [Concomitant]

REACTIONS (5)
  - WEIGHT DECREASED [None]
  - FEELING ABNORMAL [None]
  - RENAL IMPAIRMENT [None]
  - DIARRHOEA [None]
  - FLATULENCE [None]
